FAERS Safety Report 4302609-2 (Version None)
Quarter: 2004Q1

REPORT INFORMATION
  Report Type: 
  Country: None (occurrence: None)
  Receive Date: 20040220
  Receipt Date: 20040210
  Transmission Date: 20041129
  Serious: No
  Sender: FDA-Public Use
  Company Number: 03P-163-0245221-00

PATIENT
  Age: 67 Year
  Sex: Female
  Weight: 72.5755 kg

DRUGS (6)
  1. HUMIRA [Suspect]
     Indication: RHEUMATOID ARTHRITIS
     Dosage: 40 MG, 1 IN 2 WK, SUBCUTANEOUS
     Route: 058
     Dates: start: 20030301
  2. CELECOXIB [Concomitant]
  3. GABAPENTIN [Concomitant]
  4. AMITRIPTYLINE HCL [Concomitant]
  5. RISEDRONATE SODIUM [Concomitant]
  6. LANSOPRAZOLE [Concomitant]

REACTIONS (6)
  - BLINDNESS [None]
  - CATARACT [None]
  - CORNEAL TRANSPLANT [None]
  - FALL [None]
  - INJECTION SITE BURNING [None]
  - MUSCLE RUPTURE [None]
